FAERS Safety Report 9237624 (Version 2)
Quarter: 2013Q2

REPORT INFORMATION
  Report Type: Spontaneous
  Country: US (occurrence: US)
  Receive Date: 20130418
  Receipt Date: 20130530
  Transmission Date: 20140414
  Serious: Yes (Hospitalization)
  Sender: FDA-Public Use
  Company Number: US-BIOGENIDEC-2013BI035019

PATIENT
  Age: 48 Year
  Sex: Male

DRUGS (5)
  1. TYSABRI [Suspect]
     Indication: PRODUCT USED FOR UNKNOWN INDICATION
  2. AMPYRA [Concomitant]
     Indication: GAIT DISTURBANCE
     Route: 048
  3. LEXAPRO [Concomitant]
  4. BACLOFEN [Concomitant]
  5. CRESTOR [Concomitant]

REACTIONS (4)
  - Decreased immune responsiveness [Recovered/Resolved]
  - Influenza [Recovered/Resolved]
  - Diarrhoea [Recovered/Resolved]
  - Multiple sclerosis relapse [Recovered/Resolved]
